FAERS Safety Report 6324272-1 (Version None)
Quarter: 2009Q3

REPORT INFORMATION
  Report Type: 
  Country: None (occurrence: None)
  Receive Date: 20090824
  Receipt Date: 20090519
  Transmission Date: 20100115
  Serious: No
  Sender: FDA-Public Use
  Company Number: US-ABBOTT-09P-163-0574555-00

PATIENT
  Sex: Female
  Weight: 59.02 kg

DRUGS (3)
  1. NIASPAN [Suspect]
     Indication: LIPOPROTEIN (A) INCREASED
     Route: 048
     Dates: start: 20090516, end: 20090519
  2. SIMVASTATIN [Concomitant]
     Indication: BLOOD CHOLESTEROL INCREASED
  3. ASPIRIN [Concomitant]
     Indication: DRUG USE FOR UNKNOWN INDICATION
     Route: 048

REACTIONS (2)
  - DIARRHOEA [None]
  - VOMITING [None]
